FAERS Safety Report 21341460 (Version 6)
Quarter: 2022Q4

REPORT INFORMATION
  Report Type: Spontaneous
  Country: US (occurrence: US)
  Receive Date: 20220916
  Receipt Date: 20221019
  Transmission Date: 20230113
  Serious: Yes (Hospitalization, Other)
  Sender: FDA-Public Use
  Company Number: US-UNITED THERAPEUTICS-UNT-2022-020925

PATIENT
  Sex: Female
  Weight: 66.667 kg

DRUGS (6)
  1. REMODULIN [Suspect]
     Active Substance: TREPROSTINIL
     Indication: Pulmonary arterial hypertension
     Dosage: UNK, CONTINUING
     Route: 058
     Dates: start: 2022
  2. REMODULIN [Suspect]
     Active Substance: TREPROSTINIL
     Dosage: 0.003 ?G/KG (AT A PUMP RATE OF 0.014 MLS/H), CONTINUING
     Route: 058
     Dates: start: 2022
  3. REMODULIN [Suspect]
     Active Substance: TREPROSTINIL
     Indication: Pulmonary arterial hypertension
     Dosage: UNK, CONTINUING
     Route: 058
     Dates: start: 20220912
  4. REMODULIN [Suspect]
     Active Substance: TREPROSTINIL
     Dosage: 0.0035 ?G/KG (PRE-FILED WITH 2.8ML PER CASSETTE, PUMP RATE 16MCL/HOUR), CONTINUING
     Route: 058
     Dates: start: 202209, end: 202209
  5. REMODULIN [Suspect]
     Active Substance: TREPROSTINIL
     Dosage: 0.0035 ?G/KG (PRE-FILED WITH 2.2ML PER CASSETTE, PUMP RATE 16MCL/HOUR), CONTINUING
     Route: 058
     Dates: start: 202209
  6. ELIQUIS [Concomitant]
     Active Substance: APIXABAN
     Indication: Product used for unknown indication
     Dosage: UNK
     Route: 065

REACTIONS (33)
  - Urinary tract infection [Unknown]
  - Kidney infection [Unknown]
  - Hepatic cirrhosis [Unknown]
  - Pancreatitis chronic [Unknown]
  - Pulmonary oedema [Unknown]
  - Cardiac dysfunction [Unknown]
  - Thrombosis [Unknown]
  - Hypertension [Unknown]
  - Weight increased [Unknown]
  - Dyspnoea [Unknown]
  - Chest pain [Unknown]
  - Blood potassium decreased [Unknown]
  - Device difficult to use [Recovered/Resolved]
  - Muscle spasms [Unknown]
  - Headache [Unknown]
  - Nausea [Unknown]
  - Fatigue [Unknown]
  - Tremor [Unknown]
  - Neck pain [Unknown]
  - Pain [Unknown]
  - Glossodynia [Unknown]
  - Abdominal pain [Unknown]
  - Infusion site pain [Unknown]
  - Diarrhoea [Unknown]
  - Flatulence [Unknown]
  - Joint swelling [Unknown]
  - Peripheral swelling [Unknown]
  - Ageusia [Unknown]
  - Arthralgia [Unknown]
  - Myalgia [Not Recovered/Not Resolved]
  - Seasonal allergy [Unknown]
  - Limb deformity [Unknown]
  - Bone pain [Unknown]

NARRATIVE: CASE EVENT DATE: 20220101
